FAERS Safety Report 10537569 (Version 1)
Quarter: 2014Q4

REPORT INFORMATION
  Report Type: Spontaneous
  Country: IT (occurrence: None)
  Receive Date: 20141021
  Receipt Date: 20141021
  Transmission Date: 20150529
  Serious: Yes (Death, Other)
  Sender: FDA-Public Use
  Company Number: 2014STPI000567

PATIENT
  Age: 86 Year
  Sex: Male

DRUGS (9)
  1. CARNITOR [Suspect]
     Active Substance: LEVOCARNITINE
     Indication: CARNITINE DEFICIENCY
     Dates: start: 20140303, end: 20140324
  2. DONEPEZIL HYDROCHLORIDE (DONEPEZIL HYDROCHLORIDE) [Concomitant]
  3. VERAPAMIL HYDROCHLORIDE  (VERAPAMIL HYDROCHLORIDE) [Concomitant]
  4. WARFARIN POTASSIUM TOWA (WARFARIN POTASSIUM) [Concomitant]
  5. RISPERIDONE (RISPERIDONE) [Concomitant]
     Active Substance: RISPERIDONE
  6. DIAZEPAM AMEL (DIAZEPAM) [Concomitant]
  7. DIGOXIN (DIGOXIN) [Concomitant]
     Active Substance: DIGOXIN
  8. PRECIPITATED CALCIUM CARBONATE (CALCIUM CARBONATE) [Concomitant]
  9. NALFURAFINE HYDROCHLORIDE (NALFURAFINE HYDROCHLORIDE) [Concomitant]

REACTIONS (5)
  - Decreased appetite [None]
  - Restlessness [None]
  - Lobar pneumonia [None]
  - Delirium [None]
  - Initial insomnia [None]

NARRATIVE: CASE EVENT DATE: 201403
